FAERS Safety Report 8266850-9 (Version None)
Quarter: 2012Q2

REPORT INFORMATION
  Report Type: 
  Country: None (occurrence: None)
  Receive Date: 20120409
  Receipt Date: 20120329
  Transmission Date: 20120825
  Serious: No
  Sender: FDA-Public Use
  Company Number: US-BIOGENIDEC-2012BI011472

PATIENT
  Age: 34 Year
  Sex: Female

DRUGS (1)
  1. TYSABRI [Suspect]
     Indication: MULTIPLE SCLEROSIS
     Route: 042
     Dates: start: 20090727, end: 20110224

REACTIONS (9)
  - BALANCE DISORDER [None]
  - COORDINATION ABNORMAL [None]
  - MUSCLE SPASTICITY [None]
  - PARAESTHESIA [None]
  - GAIT DISTURBANCE [None]
  - CLUMSINESS [None]
  - MULTIPLE SCLEROSIS RELAPSE [None]
  - INSOMNIA [None]
  - FALL [None]
